FAERS Safety Report 6858386-4 (Version None)
Quarter: 2010Q3

REPORT INFORMATION
  Report Type: 
  Country: None (occurrence: None)
  Receive Date: 20100719
  Receipt Date: 20080207
  Transmission Date: 20110219
  Serious: No
  Sender: FDA-Public Use
  Company Number: US-PFIZER INC-2008012904

PATIENT
  Sex: Female
  Weight: 65.8 kg

DRUGS (2)
  1. CHANTIX [Suspect]
     Indication: SMOKING CESSATION THERAPY
     Dates: start: 20080131, end: 20080206
  2. OTHER HYPNOTICS AND SEDATIVES [Concomitant]

REACTIONS (3)
  - HEART RATE INCREASED [None]
  - MUSCLE TWITCHING [None]
  - NAUSEA [None]
